FAERS Safety Report 12623183 (Version 2)
Quarter: 2016Q3

REPORT INFORMATION
  Report Type: Spontaneous
  Country: US (occurrence: US)
  Receive Date: 20160804
  Receipt Date: 20160831
  Transmission Date: 20161109
  Serious: No
  Sender: FDA-Public Use
  Company Number: US-PFIZER INC-2016350320

PATIENT
  Age: 70 Year
  Sex: Male
  Weight: 106 kg

DRUGS (7)
  1. ASPIRIN. [Concomitant]
     Active Substance: ASPIRIN
     Indication: BLOOD DISORDER
     Dosage: 325MG ONE TABLET A DAY
     Route: 048
  2. METOPROLOL TARTRATE. [Concomitant]
     Active Substance: METOPROLOL TARTRATE
     Indication: HYPERTENSION
     Dosage: 12.5 MG TABLET TWICE A DAY
     Route: 048
  3. LISINOPRIL. [Concomitant]
     Active Substance: LISINOPRIL
     Indication: HYPERTENSION
     Dosage: 5MG TABLET ONCE A DAY
     Route: 048
  4. CARBIDOPA/LEVODOPA [Concomitant]
     Indication: NERVE INJURY
     Dosage: [CARBIDOPA 25 MG]/[LEVODOPA 100MG] 1 TABLET THREE TIMES A DAY
     Route: 048
     Dates: start: 2015
  5. ACETAMINOPHEN. [Concomitant]
     Active Substance: ACETAMINOPHEN
     Indication: PAIN
     Dosage: TAKE AS NEEDED. DOES NOT SAY A DOSE
  6. FLECTOR [Suspect]
     Active Substance: DICLOFENAC EPOLAMINE
     Indication: PAIN
     Dosage: 1.3% 1 PATCH TO THE SKIN TWICE DAILY TO MOST PAINFUL AREA
     Dates: start: 20160630, end: 20160712
  7. GABAPENTIN. [Concomitant]
     Active Substance: GABAPENTIN
     Indication: PAIN
     Dosage: ONE 300MG CAPSULE TWICE A DAY CAPSULE
     Route: 048

REACTIONS (4)
  - Hyperaesthesia [Recovered/Resolved]
  - Muscle spasms [Recovered/Resolved]
  - Condition aggravated [Recovered/Resolved]
  - Drug ineffective [Unknown]

NARRATIVE: CASE EVENT DATE: 20160630
